FAERS Safety Report 11078837 (Version 1)
Quarter: 2015Q2

REPORT INFORMATION
  Report Type: Spontaneous
  Country: US (occurrence: None)
  Receive Date: 20150429
  Receipt Date: 20150429
  Transmission Date: 20150821
  Serious: Yes (Other)
  Sender: FDA-Public Use
  Company Number: None

PATIENT
  Age: 43 Year
  Sex: Male

DRUGS (2)
  1. HUMIRA [Suspect]
     Active Substance: ADALIMUMAB
     Indication: PSORIASIS
     Dosage: ROUTE: SUBCUTANEOUS  DOSE FORM: INJECTABLE  FREQUENCY: EVERY OTHER WEEK?
     Route: 058
     Dates: start: 201502, end: 20150428
  2. HUMIRA [Suspect]
     Active Substance: ADALIMUMAB
     Indication: PSORIATIC ARTHROPATHY
     Dosage: ROUTE: SUBCUTANEOUS  DOSE FORM: INJECTABLE  FREQUENCY: EVERY OTHER WEEK?
     Route: 058
     Dates: start: 201502, end: 20150428

REACTIONS (1)
  - Drug dose omission [None]

NARRATIVE: CASE EVENT DATE: 20150420
